FAERS Safety Report 5934996-3 (Version None)
Quarter: 2008Q4

REPORT INFORMATION
  Report Type: 
  Country: None (occurrence: None)
  Receive Date: 20081029
  Receipt Date: 20081029
  Transmission Date: 20090506
  Serious: Yes (Life-Threatening, Disabling, Other)
  Sender: FDA-Public Use
  Company Number: None

PATIENT
  Age: 37 Year
  Sex: Male
  Weight: 88 kg

DRUGS (1)
  1. ARTICAINE 4% [Suspect]
     Indication: PERIODONTITIS
     Dosage: 1,7 ML 1 INJ
     Dates: start: 20081022, end: 20081024

REACTIONS (7)
  - ASTHENIA [None]
  - FATIGUE [None]
  - HEART RATE DECREASED [None]
  - MALAISE [None]
  - PALLOR [None]
  - SOMNOLENCE [None]
  - SPEECH DISORDER [None]
